FAERS Safety Report 9486293 (Version 3)
Quarter: 2013Q3

REPORT INFORMATION
  Report Type: Spontaneous
  Country: JP (occurrence: JP)
  Receive Date: 20130829
  Receipt Date: 20130916
  Transmission Date: 20140515
  Serious: Yes (Hospitalization)
  Sender: FDA-Public Use
  Company Number: JP-ASTELLAS-2013JP005475

PATIENT
  Age: 69 Year
  Sex: Male
  Weight: 71.9 kg

DRUGS (6)
  1. BETANIS [Suspect]
     Indication: URGE INCONTINENCE
     Dosage: 50 MG, UID/QD
     Route: 048
     Dates: start: 20121016, end: 20121106
  2. BETANIS [Suspect]
     Indication: STRESS URINARY INCONTINENCE
     Dosage: 50 MG, UID/QD
     Route: 048
     Dates: start: 20121212, end: 20130314
  3. SPIROPENT [Suspect]
     Indication: URGE INCONTINENCE
     Dosage: 10 UG, BID
     Route: 048
     Dates: start: 20121107, end: 20121211
  4. SPIROPENT [Suspect]
     Indication: STRESS URINARY INCONTINENCE
     Dosage: 10 UG, BID
     Route: 048
     Dates: start: 20130315, end: 20130409
  5. NORVASC [Concomitant]
     Indication: HYPERTENSION
     Dosage: 5 MG, UID/QD
     Route: 048
  6. BLOPRESS [Concomitant]
     Indication: HYPERTENSION
     Dosage: 8 MG, UID/QD
     Route: 048

REACTIONS (2)
  - Hyperglycaemia [Recovering/Resolving]
  - Hepatic function abnormal [Recovered/Resolved]
